FAERS Safety Report 17717566 (Version 1)
Quarter: 2020Q2

REPORT INFORMATION
  Report Type: Report from Study
  Country: IL (occurrence: IL)
  Receive Date: 20200428
  Receipt Date: 20200428
  Transmission Date: 20200714
  Serious: Yes (Other)
  Sender: FDA-Public Use
  Company Number: IL-IPSEN BIOPHARMACEUTICALS, INC.-2020-06307

PATIENT
  Age: 60 Year
  Sex: Female
  Weight: 107 kg

DRUGS (6)
  1. SOMATULINE [Suspect]
     Active Substance: LANREOTIDE ACETATE
     Route: 058
  2. MERCAPTIZOL [Concomitant]
     Active Substance: METHIMAZOLE
     Indication: HYPERTHYROIDISM
     Dosage: 10, ALTERNATE DAY
  3. SOMATULINE [Suspect]
     Active Substance: LANREOTIDE ACETATE
     Route: 058
  4. SOMATULINE [Suspect]
     Active Substance: LANREOTIDE ACETATE
     Route: 058
  5. SOMATULINE [Suspect]
     Active Substance: LANREOTIDE ACETATE
     Indication: ACROMEGALY
     Route: 058
     Dates: start: 20120116
  6. SOMATULINE [Suspect]
     Active Substance: LANREOTIDE ACETATE
     Route: 058

REACTIONS (4)
  - Nephrolithiasis [Recovered/Resolved]
  - Insulin-like growth factor increased [Recovered/Resolved]
  - Alopecia [Unknown]
  - Off label use [Unknown]
